FAERS Safety Report 7599671 (Version 3)
Quarter: 2013Q2

REPORT INFORMATION
  Report Type: Spontaneous
  Country: FR (occurrence: FR)
  Receive Date: 20100921
  Receipt Date: 20130618
  Transmission Date: 20140414
  Serious: Yes (Hospitalization)
  Sender: FDA-Public Use
  Company Number: PHHY2010FR60641

PATIENT
  Age: 85 Year
  Sex: Male

DRUGS (9)
  1. AREDIA [Suspect]
     Indication: PLASMA CELL MYELOMA
     Dosage: UNK
  2. ACTONEL [Suspect]
     Indication: PLASMA CELL MYELOMA
     Dosage: 35 MG, QW
     Dates: start: 2009, end: 201008
  3. BONVIVA [Suspect]
     Indication: PLASMA CELL MYELOMA
     Dosage: UNK UKN, UNK
  4. CELECTOL [Concomitant]
     Dosage: 200 MG, UNK
  5. DIFFU K [Concomitant]
     Dosage: UNK UKN, UNK
  6. OMEPRAZOLE [Concomitant]
     Dosage: UNK UKN, UNK
  7. DUPHALAC [Concomitant]
     Dosage: UNK UKN, UNK
  8. JOSIR [Concomitant]
     Dosage: UNK UKN, UNK
  9. GLUCOPHAGE [Concomitant]
     Dosage: UNK UKN, UNK

REACTIONS (10)
  - Lung disorder [Not Recovered/Not Resolved]
  - Dyspnoea [Not Recovered/Not Resolved]
  - Osteonecrosis of jaw [Unknown]
  - Pain in jaw [Unknown]
  - Osteitis [Unknown]
  - Osteomyelitis [Unknown]
  - Swelling [Unknown]
  - Apical granuloma [Not Recovered/Not Resolved]
  - Stomatitis necrotising [Not Recovered/Not Resolved]
  - Gingival ulceration [Not Recovered/Not Resolved]
